FAERS Safety Report 17963089 (Version 1)
Quarter: 2020Q2

REPORT INFORMATION
  Report Type: Report from Study
  Country: None (occurrence: US)
  Receive Date: 20200630
  Receipt Date: 20200630
  Transmission Date: 20200714
  Serious: Yes (Other)
  Sender: FDA-Public Use
  Company Number: US-BIOVITRUM-2020US1297

PATIENT
  Sex: Female

DRUGS (1)
  1. KINERET [Suspect]
     Active Substance: ANAKINRA
     Indication: PRODUCT USED FOR UNKNOWN INDICATION
     Route: 058
     Dates: start: 20190417

REACTIONS (16)
  - Blood immunoglobulin G decreased [Unknown]
  - Deformity [Unknown]
  - Cellulitis [Unknown]
  - Infection [Unknown]
  - Immunoglobulins decreased [Unknown]
  - Oedema [Unknown]
  - Joint ankylosis [Unknown]
  - Protein total decreased [Unknown]
  - Pneumonia [Unknown]
  - Urosepsis [Unknown]
  - Blood immunoglobulin A decreased [Unknown]
  - Synovitis [Unknown]
  - Blood immunoglobulin M decreased [Unknown]
  - Light chain analysis decreased [Unknown]
  - C-reactive protein increased [Unknown]
  - Tenderness [Unknown]
